FAERS Safety Report 9661477 (Version 2)
Quarter: 2013Q4

REPORT INFORMATION
  Report Type: Not Available
  Country: US (occurrence: US)
  Receive Date: 20131031
  Receipt Date: 20131031
  Transmission Date: 20140711
  Serious: No
  Sender: FDA-Public Use
  Company Number: US-PURDUE-USA-2010-0055816

PATIENT
  Sex: Male

DRUGS (1)
  1. OXYCONTIN (NDA 22-272) [Suspect]
     Indication: PAIN
     Dosage: 80 MG, QID

REACTIONS (15)
  - Oropharyngeal plaque [Unknown]
  - Abdominal distension [Unknown]
  - Productive cough [Unknown]
  - Dry throat [Unknown]
  - Product quality issue [Unknown]
  - Abdominal pain [Unknown]
  - Headache [Unknown]
  - Inadequate analgesia [Unknown]
  - Therapeutic response delayed [Unknown]
  - Flatulence [Unknown]
  - Drug effect decreased [Unknown]
  - Abdominal discomfort [Unknown]
  - Drug ineffective [Unknown]
  - Abdominal pain upper [Unknown]
  - Dyspepsia [Unknown]
